FAERS Safety Report 8790889 (Version 4)
Quarter: 2012Q4

REPORT INFORMATION
  Report Type: Spontaneous
  Country: GB (occurrence: None)
  Receive Date: 20120910
  Receipt Date: 20121016
  Transmission Date: 20130627
  Serious: Yes (Other)
  Sender: FDA-Public Use
  Company Number: 2012-3946

PATIENT
  Age: 40 Year
  Sex: Female
  Weight: 34 kg

DRUGS (6)
  1. DYSPORT [Suspect]
     Indication: SPASTICITY
     Dosage: 375 units (375 Units, 1 in 1 Cycle(s)), Intramuscular
     Route: 030
     Dates: start: 20110922
  2. DYSPORT [Suspect]
     Indication: SPASTICITY
     Dosage: 350 units (350 Units, 1 in 1 Cycle(s)), Intramuscular
     Route: 030
     Dates: start: 20110201
  3. CARBAMAZEPINE (CARBAMAZEPINE) CHEWABLE TABLET [Concomitant]
  4. METOCLOPRAMIDE (METOCLOPRAMIDE) [Concomitant]
  5. VIGABATRINE (VIGABATRIN) [Concomitant]
  6. CLOBAZAM (CLOBAZAM) [Concomitant]

REACTIONS (1)
  - Grand mal convulsion [None]
